FAERS Safety Report 9099235 (Version 1)
Quarter: 2013Q1

REPORT INFORMATION
  Report Type: Spontaneous
  Country: BR (occurrence: BR)
  Receive Date: 20130213
  Receipt Date: 20130213
  Transmission Date: 20140127
  Serious: Yes (Hospitalization)
  Sender: FDA-Public Use
  Company Number: BR-ASTRAZENECA-2013SE08673

PATIENT
  Age: 684 Month
  Sex: Female
  Weight: 60 kg

DRUGS (4)
  1. NEXIUM [Suspect]
     Indication: ULCER
     Route: 048
     Dates: start: 201206
  2. LYRICA [Concomitant]
     Indication: ANALGESIC THERAPY
     Route: 048
  3. TRAMAL [Concomitant]
     Indication: ANALGESIC THERAPY
     Route: 048
  4. CELEBRA [Concomitant]
     Indication: ANTIINFLAMMATORY THERAPY
     Route: 048

REACTIONS (2)
  - Spondylolisthesis [Recovered/Resolved]
  - Device dislocation [Recovered/Resolved]
